FAERS Safety Report 7971514-2 (Version None)
Quarter: 2011Q4

REPORT INFORMATION
  Report Type: 
  Country: None (occurrence: None)
  Receive Date: 20111212
  Receipt Date: 20111129
  Transmission Date: 20120403
  Serious: Yes (Other)
  Sender: FDA-Public Use
  Company Number: US-ELI_LILLY_AND_COMPANY-US201112000606

PATIENT

DRUGS (1)
  1. CYMBALTA [Suspect]
     Dosage: 30 MG, UNKNOWN

REACTIONS (1)
  - ANAPHYLACTIC REACTION [None]
